FAERS Safety Report 10109816 (Version 1)
Quarter: 2014Q2

REPORT INFORMATION
  Report Type: Spontaneous
  Country: US (occurrence: US)
  Receive Date: 20140425
  Receipt Date: 20140425
  Transmission Date: 20141212
  Serious: No
  Sender: FDA-Public Use
  Company Number: US-TEVA-477827USA

PATIENT
  Sex: Female

DRUGS (1)
  1. TAKE ACTION [Suspect]
     Indication: POST COITAL CONTRACEPTION
     Dosage: 1.5 MILLIGRAM DAILY;
     Route: 048
     Dates: start: 20140329, end: 20140329

REACTIONS (7)
  - Vaginal discharge [Unknown]
  - Urine odour abnormal [Unknown]
  - Feeling abnormal [Unknown]
  - Nausea [Unknown]
  - Vomiting [Unknown]
  - Menstruation irregular [Unknown]
  - Dizziness [Unknown]
